FAERS Safety Report 16042458 (Version 2)
Quarter: 2019Q1

REPORT INFORMATION
  Report Type: Spontaneous
  Country: US (occurrence: US)
  Receive Date: 20190306
  Receipt Date: 20190308
  Transmission Date: 20190418
  Serious: No
  Sender: FDA-Public Use
  Company Number: US-TEVA-2019-US-1010647

PATIENT
  Sex: Female

DRUGS (2)
  1. BUPRENORPHINE TRANSDERMAL PATCH TEVA [Suspect]
     Active Substance: BUPRENORPHINE
     Dosage: 10 MCG/HR FREQUENCY: WEEKLY
     Route: 062
     Dates: start: 201812
  2. BUPRENORPHINE TRANSDERMAL PATCH TEVA [Suspect]
     Active Substance: BUPRENORPHINE
     Dosage: 10 MCG/HR FREQUENCY: WEEKLY
     Route: 062
     Dates: start: 20190112

REACTIONS (9)
  - Product substitution issue [Unknown]
  - Application site erythema [Unknown]
  - Scratch [Unknown]
  - Pruritus [Unknown]
  - Product adhesion issue [Unknown]
  - Skin irritation [Unknown]
  - Drug hypersensitivity [Unknown]
  - Drug level below therapeutic [None]
  - Application site pain [Unknown]
